FAERS Safety Report 4646877-6 (Version None)
Quarter: 2005Q1

REPORT INFORMATION
  Report Type: 
  Country: None (occurrence: None)
  Receive Date: 20050331
  Receipt Date: 20050217
  Transmission Date: 20050727
  Serious: No
  Sender: FDA-Public Use
  Company Number: 05P-163-0291031-00

PATIENT
  Age: 69 Year
  Sex: Female
  Weight: 63.9572 kg

DRUGS (9)
  1. HUMIRA [Suspect]
     Indication: RHEUMATOID ARTHRITIS
     Dosage: 40 MG, 1 IN 2 WK, SUBCUTANEOUS
     Route: 058
     Dates: start: 20041001, end: 20050205
  2. CELECOXIB [Concomitant]
  3. FUROSEMIDE [Concomitant]
  4. FOLIC ACID [Concomitant]
  5. METHOTREXATE [Concomitant]
  6. PREDNISONE [Concomitant]
  7. DIGOXIN [Concomitant]
  8. LEVOTHYROXIDE SODIUM [Concomitant]
  9. ASPIRIN [Concomitant]

REACTIONS (3)
  - FATIGUE [None]
  - GASTRIC ULCER [None]
  - OEDEMA PERIPHERAL [None]
